FAERS Safety Report 12963331 (Version 1)
Quarter: 2016Q4

REPORT INFORMATION
  Report Type: Spontaneous
  Country: US (occurrence: US)
  Receive Date: 20161122
  Receipt Date: 20161122
  Transmission Date: 20170207
  Serious: Yes (Hospitalization, Other)
  Sender: FDA-Public Use
  Company Number: US-SUN PHARMACEUTICAL INDUSTRIES LTD-2016US-127934

PATIENT
  Age: 24 Month
  Sex: Male

DRUGS (1)
  1. MIDAZOLAM [Suspect]
     Active Substance: MIDAZOLAM\MIDAZOLAM HYDROCHLORIDE
     Indication: PRODUCT USED FOR UNKNOWN INDICATION
     Dosage: UNK
     Route: 065

REACTIONS (6)
  - Intracranial pressure increased [Recovered/Resolved]
  - Depressed level of consciousness [Recovered/Resolved]
  - Papilloedema [Recovered/Resolved]
  - Bradycardia [Unknown]
  - Strabismus [Recovered/Resolved]
  - Condition aggravated [Recovered/Resolved]
